FAERS Safety Report 9368530 (Version 1)
Quarter: 2013Q2

REPORT INFORMATION
  Report Type: Spontaneous
  Country: IT (occurrence: IT)
  Receive Date: 20130625
  Receipt Date: 20130625
  Transmission Date: 20140414
  Serious: Yes (Hospitalization)
  Sender: FDA-Public Use
  Company Number: IT-BRISTOL-MYERS SQUIBB COMPANY-19037134

PATIENT
  Age: 77 Year
  Sex: Female

DRUGS (5)
  1. COUMADIN TABS 5 MG [Suspect]
     Indication: ATRIAL FIBRILLATION
     Dosage: 1 DF : 1 UNIT.
     Route: 048
     Dates: start: 20130101
  2. BISOPROLOL HEMIFUMARATE [Concomitant]
     Route: 048
  3. LASIX [Concomitant]
     Dosage: TABLET
  4. PLAUNAC [Concomitant]
     Dosage: TABLET
     Route: 048
  5. ISOPTIN [Concomitant]
     Dosage: TABLET?3 UNIT
     Route: 048

REACTIONS (2)
  - Subdural haematoma [Unknown]
  - Head injury [Unknown]
